FAERS Safety Report 8365788-6 (Version None)
Quarter: 2012Q2

REPORT INFORMATION
  Report Type: 
  Country: None (occurrence: None)
  Receive Date: 20120517
  Receipt Date: 20120510
  Transmission Date: 20120825
  Serious: Yes (Other)
  Sender: FDA-Public Use
  Company Number: US-AMGEN-USASP2012029832

PATIENT
  Age: 77 Year
  Sex: Female

DRUGS (16)
  1. ASMANEX TWISTHALER [Concomitant]
     Dosage: 2 MUG, UNK
  2. DILTIAZEM [Concomitant]
     Dosage: 1 MG, UNK
  3. IBUPROFEN [Concomitant]
     Dosage: 4 MG, UNK
  4. PROLIA [Suspect]
     Indication: OSTEOPOROSIS POSTMENOPAUSAL
     Dosage: 60 MG, Q6MO
     Dates: start: 20111103
  5. CLARITIN                           /00413701/ [Concomitant]
     Dosage: UNK DF, UNK
  6. SIMVASTATIN [Concomitant]
     Dosage: 1 MG, UNK
  7. CELEXA [Concomitant]
     Dosage: 1 MG, UNK
  8. KLOR-CON [Concomitant]
     Dosage: UNK DF, UNK
  9. TRIAMTERENE AND HYDROCHLOROTHIAZIDE [Concomitant]
     Dosage: 1 DF, UNK
  10. SINGULAIR [Concomitant]
     Dosage: 1 MG, UNK
  11. GABAPENTIN [Concomitant]
     Dosage: 2 MG, UNK
  12. FLUTICASONE FUROATE [Concomitant]
     Dosage: 2 MUG, UNK
  13. VITAMIN D [Concomitant]
     Dosage: UNK
  14. COLACE [Concomitant]
     Dosage: 2 MG, UNK
  15. OMEPRAZOLE [Concomitant]
     Dosage: 3 UNK, UNK
  16. LOSARTAN POTASSIUM [Concomitant]
     Dosage: 1 MG, UNK

REACTIONS (3)
  - BACK PAIN [None]
  - MUSCULOSKELETAL PAIN [None]
  - INCONTINENCE [None]
